FAERS Safety Report 10061418 (Version 2)
Quarter: 2014Q2

REPORT INFORMATION
  Report Type: Report from Study
  Country: US (occurrence: US)
  Receive Date: 20140407
  Receipt Date: 20140424
  Transmission Date: 20141212
  Serious: Yes (Hospitalization)
  Sender: FDA-Public Use
  Company Number: US-CELGENEUS-163-21880-14035026

PATIENT
  Age: 49 Year
  Sex: Male

DRUGS (4)
  1. REVLIMID [Suspect]
     Indication: PLASMA CELL MYELOMA
     Dosage: 15 MILLIGRAM
     Route: 048
     Dates: start: 20100427
  2. REVLIMID [Suspect]
     Dosage: 11.25 MILLIGRAM
     Route: 048
     Dates: start: 20110602
  3. KYPROLIS [Suspect]
     Indication: PLASMA CELL MYELOMA
     Route: 041
     Dates: start: 20131218, end: 20140327
  4. DEXAMETHASONE [Suspect]
     Indication: PLASMA CELL MYELOMA
     Dosage: 20 MILLIGRAM
     Route: 048
     Dates: start: 20100427, end: 20140327

REACTIONS (1)
  - Cellulitis [Unknown]
